FAERS Safety Report 4471755-5 (Version None)
Quarter: 2004Q4

REPORT INFORMATION
  Report Type: 
  Country: None (occurrence: None)
  Receive Date: 20041007
  Receipt Date: 20040924
  Transmission Date: 20050328
  Serious: Yes (Hospitalization)
  Sender: FDA-Public Use
  Company Number: 2004236229DE

PATIENT
  Age: 7 Year
  Sex: Male

DRUGS (4)
  1. IDARUBICIN HCL [Suspect]
     Indication: ACUTE MYELOID LEUKAEMIA
     Dosage: 14 MG/M2, CYCLIC , DAYS 3,4,5, IV DRIP
     Route: 041
  2. CYTARABINE [Suspect]
     Indication: ACUTE MYELOID LEUKAEMIA
     Dosage: 100 MG/M2 CYCLIC, 2-D INFUSION, IV DRIP : 100 MG/M2, CYCLIC , DAYS 3, 8 : HIGH-DOSE CONSOLIDATION
     Route: 041
  3. ETOPOSIDE [Suspect]
     Indication: ACUTE MYELOID LEUKAEMIA
     Dosage: 150 MG/M2, CYCLIC, DAYS 6, 7, 8, IV DRIP
     Route: 041
  4. MITOXANTRONE [Suspect]
     Indication: ACUTE MYELOID LEUKAEMIA

REACTIONS (6)
  - ENCEPHALOPATHY [None]
  - MUCOSAL INFLAMMATION [None]
  - NEUROTOXICITY [None]
  - PNEUMONIA MYCOPLASMAL [None]
  - STAPHYLOCOCCAL SEPSIS [None]
  - THERAPEUTIC AGENT TOXICITY [None]
